FAERS Safety Report 6489330-X (Version None)
Quarter: 2009Q4

REPORT INFORMATION
  Report Type: 
  Country: None (occurrence: None)
  Receive Date: 20091210
  Receipt Date: 20091006
  Transmission Date: 20100525
  Serious: No
  Sender: FDA-Public Use
  Company Number: US-AMGEN-KDL367889

PATIENT
  Sex: Male

DRUGS (1)
  1. ENBREL [Suspect]
     Indication: PSORIASIS
     Route: 058
     Dates: start: 20090215

REACTIONS (5)
  - COUGH [None]
  - INJECTION SITE MASS [None]
  - NASOPHARYNGITIS [None]
  - PSORIASIS [None]
  - RESPIRATORY TRACT CONGESTION [None]
